FAERS Safety Report 6653749-4 (Version None)
Quarter: 2010Q1

REPORT INFORMATION
  Report Type: 
  Country: None (occurrence: None)
  Receive Date: 20100326
  Receipt Date: 20100316
  Transmission Date: 20100710
  Serious: Yes (Hospitalization)
  Sender: FDA-Public Use
  Company Number: US-GENZYME-FABR-1000886

PATIENT
  Sex: Female
  Weight: 98 kg

DRUGS (4)
  1. FABRAZYME [Suspect]
     Indication: FABRY'S DISEASE
     Dosage: 105 MG, Q2W
     Route: 042
     Dates: start: 20081118
  2. FABRAZYME [Suspect]
     Dosage: UNK
     Route: 042
  3. TYLENOL-500 [Concomitant]
     Indication: PREMEDICATION
  4. BENADRYL [Concomitant]
     Indication: PREMEDICATION

REACTIONS (4)
  - CHEST PAIN [None]
  - GASTROINTESTINAL DISORDER [None]
  - LIVER DISORDER [None]
  - PAIN [None]
